FAERS Safety Report 13233414 (Version 1)
Quarter: 2017Q1

REPORT INFORMATION
  Report Type: Spontaneous
  Country: CA (occurrence: CA)
  Receive Date: 20170215
  Receipt Date: 20170215
  Transmission Date: 20170428
  Serious: Yes (Other)
  Sender: FDA-Public Use
  Company Number: CA-TEVA-739148ACC

PATIENT
  Age: 41 Year
  Sex: Female

DRUGS (1)
  1. TEVA-MOXIFLOXACIN [Suspect]
     Active Substance: MOXIFLOXACIN
     Indication: LOWER RESPIRATORY TRACT INFECTION
     Dosage: 400 MILLIGRAM DAILY;
     Route: 048

REACTIONS (4)
  - Dizziness [Unknown]
  - Paraesthesia [Unknown]
  - Feeling hot [Unknown]
  - Hypoaesthesia [Unknown]
